FAERS Safety Report 9233209 (Version 2)
Quarter: 2013Q2

REPORT INFORMATION
  Report Type: Spontaneous
  Country: US (occurrence: US)
  Receive Date: 20130416
  Receipt Date: 20130416
  Transmission Date: 20140414
  Serious: Yes (Other)
  Sender: FDA-Public Use
  Company Number: US-BANPHARM-20130705

PATIENT
  Age: 74 Year
  Sex: Female
  Weight: 49.9 kg

DRUGS (6)
  1. ALEVE LIQUID GELS 220MG [Suspect]
     Indication: ARTHRITIS
     Dosage: 1 DF, QD,
     Route: 048
     Dates: start: 201108
  2. LOW DOSE BAYER ASPIRIN [Suspect]
     Indication: CARDIOVASCULAR EVENT PROPHYLAXIS
     Dosage: 1 DF, QD,
     Route: 048
     Dates: start: 20120316, end: 20120319
  3. DILTIAZEM [Concomitant]
  4. TRIAMETER [Concomitant]
  5. PREMARIN [Concomitant]
  6. TYLENOL [Concomitant]

REACTIONS (2)
  - Haematochezia [Recovered/Resolved]
  - Incorrect drug administration duration [Unknown]
